FAERS Safety Report 5446089-2 (Version None)
Quarter: 2007Q3

REPORT INFORMATION
  Report Type: 
  Country: None (occurrence: None)
  Receive Date: 20070904
  Receipt Date: 20070821
  Transmission Date: 20080115
  Serious: Yes (Death)
  Sender: FDA-Public Use
  Company Number: 100#01#2007-03164

PATIENT
  Age: 55 Year
  Sex: Male

DRUGS (2)
  1. CALCIUM FOLINATE (CALCIUM FOLINATE) (INJECTION) (CALCIUM FOLINATE) [Suspect]
     Indication: COLON CANCER
     Dosage: 30 MG/ 5 DAYS INTRAVENOUS
     Route: 042
     Dates: start: 20070702, end: 20070706
  2. FLUOROURACIL [Concomitant]

REACTIONS (7)
  - APHTHOUS STOMATITIS [None]
  - DIARRHOEA [None]
  - GENERAL PHYSICAL HEALTH DETERIORATION [None]
  - PANCYTOPENIA [None]
  - PETECHIAE [None]
  - SEPSIS [None]
  - SKIN HYPERPIGMENTATION [None]
